FAERS Safety Report 6894385-4 (Version None)
Quarter: 2010Q3

REPORT INFORMATION
  Report Type: 
  Country: None (occurrence: None)
  Receive Date: 20100708
  Receipt Date: 20091216
  Transmission Date: 20110219
  Serious: Yes (Other)
  Sender: FDA-Public Use
  Company Number: 2009279493

PATIENT
  Age: 53 Year
  Sex: Female
  Weight: 86 kg

DRUGS (5)
  1. CHANTIX [Suspect]
     Dates: start: 20090101, end: 20090930
  2. PENICILLIN [Suspect]
  3. NORCO [Concomitant]
  4. OXYCODONE HCL [Concomitant]
  5. SOMA [Concomitant]

REACTIONS (6)
  - CONFUSIONAL STATE [None]
  - CONTUSION [None]
  - DRUG HYPERSENSITIVITY [None]
  - MANIA [None]
  - NAUSEA [None]
  - RASH ERYTHEMATOUS [None]
